FAERS Safety Report 17880184 (Version 1)
Quarter: 2020Q2

REPORT INFORMATION
  Report Type: Spontaneous
  Country: US (occurrence: US)
  Receive Date: 20200610
  Receipt Date: 20200610
  Transmission Date: 20200714
  Serious: Yes (Hospitalization)
  Sender: FDA-Public Use
  Company Number: None

PATIENT
  Age: 15 Year
  Sex: Female
  Weight: 52 kg

DRUGS (5)
  1. CYTARABINE. [Suspect]
     Active Substance: CYTARABINE
     Dates: end: 20200501
  2. DAUNORUBICIN [Suspect]
     Active Substance: DAUNORUBICIN
     Dates: end: 20200524
  3. METHOTREXATE. [Suspect]
     Active Substance: METHOTREXATE
     Dates: end: 20200529
  4. VINCRISTINE SULFATE. [Suspect]
     Active Substance: VINCRISTINE SULFATE
     Dates: end: 20200524
  5. ONCASPAR [Suspect]
     Active Substance: PEGASPARGASE
     Dates: end: 20200504

REACTIONS (5)
  - Pain in extremity [None]
  - Abdominal pain [None]
  - Spinal cord haematoma [None]
  - Asthenia [None]
  - Central nervous system lesion [None]

NARRATIVE: CASE EVENT DATE: 20200604
